FAERS Safety Report 19029070 (Version 1)
Quarter: 2021Q1

REPORT INFORMATION
  Report Type: Spontaneous
  Country: US (occurrence: US)
  Receive Date: 20210318
  Receipt Date: 20210318
  Transmission Date: 20210420
  Serious: Yes (Hospitalization)
  Sender: FDA-Public Use
  Company Number: US-TEVA-2021-US-1890755

PATIENT
  Age: 52 Year
  Sex: Male

DRUGS (10)
  1. ANTITHYMOCYTE?GLOBULIN [Suspect]
     Active Substance: THYMOCYTE IMMUNE GLOBULIN NOS
     Indication: HEART TRANSPLANT REJECTION
     Dosage: INCREASED DOSE
     Route: 065
  2. MYCOPHENOLATE MOFETIL. [Suspect]
     Active Substance: MYCOPHENOLATE MOFETIL
     Indication: IMMUNOSUPPRESSANT DRUG THERAPY
     Route: 065
  3. AMIODARONE [Suspect]
     Active Substance: AMIODARONE
     Indication: PRODUCT USED FOR UNKNOWN INDICATION
     Route: 065
  4. ANTITHYMOCYTE?GLOBULIN [Suspect]
     Active Substance: THYMOCYTE IMMUNE GLOBULIN NOS
     Indication: IMMUNOSUPPRESSANT DRUG THERAPY
     Route: 065
  5. TACROLIMUS. [Suspect]
     Active Substance: TACROLIMUS
     Indication: IMMUNOSUPPRESSANT DRUG THERAPY
     Route: 065
  6. METHIMAZOLE. [Concomitant]
     Active Substance: METHIMAZOLE
     Indication: THYROIDITIS
     Route: 065
  7. PREDNISONE. [Suspect]
     Active Substance: PREDNISONE
     Indication: IMMUNOSUPPRESSANT DRUG THERAPY
     Route: 065
  8. FLUCYTOSINE. [Concomitant]
     Active Substance: FLUCYTOSINE
     Indication: CRYPTOCOCCOSIS
     Route: 065
  9. METHIMAZOLE. [Concomitant]
     Active Substance: METHIMAZOLE
     Dosage: INCREASED DOSE
     Route: 065
  10. PREDNISONE. [Suspect]
     Active Substance: PREDNISONE
     Indication: THYROIDITIS
     Dosage: INCREASED DOSE
     Route: 065

REACTIONS (8)
  - Pericarditis fungal [Recovering/Resolving]
  - Cardiogenic shock [Recovering/Resolving]
  - Pericardial fibrosis [Unknown]
  - Thyroiditis [Unknown]
  - Cryptococcosis [Recovering/Resolving]
  - Pericardial effusion [Recovered/Resolved]
  - Restrictive cardiomyopathy [Recovering/Resolving]
  - Pericarditis adhesive [Unknown]
